FAERS Safety Report 11482533 (Version 2)
Quarter: 2015Q3

REPORT INFORMATION
  Report Type: Report from Study
  Country: AR (occurrence: AR)
  Receive Date: 20150909
  Receipt Date: 20150924
  Transmission Date: 20151125
  Serious: Yes (Other)
  Sender: FDA-Public Use
  Company Number: PHHY2015AR106805

PATIENT
  Sex: Female

DRUGS (5)
  1. DIOVAN [Suspect]
     Active Substance: VALSARTAN
     Dosage: 2 DF, BID (160 MG PER DAY INTO TWO TAKES)
     Route: 065
     Dates: start: 201504
  2. CLONAZEPAM. [Concomitant]
     Active Substance: CLONAZEPAM
     Indication: PRODUCT USED FOR UNKNOWN INDICATION
     Dosage: 5 MG, QD
     Route: 065
  3. AMLODIPINE [Concomitant]
     Active Substance: AMLODIPINE BESYLATE
     Indication: BLOOD PRESSURE INCREASED
     Dosage: 5 MG, QD
     Route: 065
  4. ACETAMINOPHEN. [Concomitant]
     Active Substance: ACETAMINOPHEN
     Indication: PRODUCT USED FOR UNKNOWN INDICATION
     Route: 065
  5. DIOVAN [Suspect]
     Active Substance: VALSARTAN
     Indication: HYPERTENSION
     Dosage: 1 DF, QD
     Route: 065
     Dates: start: 2012, end: 201504

REACTIONS (12)
  - Salivary hypersecretion [Unknown]
  - Hiatus hernia [Unknown]
  - Type 2 diabetes mellitus [Recovering/Resolving]
  - Fear [Recovering/Resolving]
  - Oesophagitis [Unknown]
  - Urticaria [Unknown]
  - Oropharyngeal pain [Recovering/Resolving]
  - Fatigue [Unknown]
  - Tonsillar inflammation [Unknown]
  - Chronic gastritis [Recovered/Resolved]
  - Feeling abnormal [Recovering/Resolving]
  - Blood pressure increased [Recovered/Resolved]
